FAERS Safety Report 8531402-X (Version None)
Quarter: 2012Q3

REPORT INFORMATION
  Report Type: 
  Country: None (occurrence: None)
  Receive Date: 20120723
  Receipt Date: 20120716
  Transmission Date: 20120928
  Serious: Yes (Other)
  Sender: FDA-Public Use
  Company Number: BE-B.I. PHARMACEUTICALS,INC./RIDGEFIELD-2012-BL-00418BL

PATIENT
  Sex: Male

DRUGS (2)
  1. OXYCURE [Concomitant]
  2. SPIRIVA [Suspect]
     Dates: start: 20120101

REACTIONS (1)
  - CEREBRAL HAEMORRHAGE [None]
